FAERS Safety Report 22146739 (Version 2)
Quarter: 2023Q2

REPORT INFORMATION
  Report Type: Report from Study
  Country: GB (occurrence: GB)
  Receive Date: 20230328
  Receipt Date: 20230405
  Transmission Date: 20230722
  Serious: Yes (Other)
  Sender: FDA-Public Use
  Company Number: GB-PFIZER INC-202300127823

PATIENT
  Age: 33 Year
  Sex: Female

DRUGS (15)
  1. CISPLATIN [Suspect]
     Active Substance: CISPLATIN
     Indication: Gestational trophoblastic tumour
     Dosage: 75 MG/M2, CYCLIC (ON DAY 1)
  2. CISPLATIN [Suspect]
     Active Substance: CISPLATIN
     Indication: Metastases to meninges
  3. CISPLATIN [Suspect]
     Active Substance: CISPLATIN
     Indication: Metastases to lung
  4. DEXAMETHASONE SODIUM PHOSPHATE [Suspect]
     Active Substance: DEXAMETHASONE SODIUM PHOSPHATE
     Indication: Gestational trophoblastic tumour
     Dosage: HIGH DOSE
  5. DEXAMETHASONE SODIUM PHOSPHATE [Suspect]
     Active Substance: DEXAMETHASONE SODIUM PHOSPHATE
     Indication: Metastases to meninges
  6. DEXAMETHASONE SODIUM PHOSPHATE [Suspect]
     Active Substance: DEXAMETHASONE SODIUM PHOSPHATE
     Indication: Metastases to lung
  7. ETOPOSIDE [Suspect]
     Active Substance: ETOPOSIDE
     Indication: Gestational trophoblastic tumour
     Dosage: 150 MG/M2, CYCLIC (ON DAY 1)
  8. ETOPOSIDE [Suspect]
     Active Substance: ETOPOSIDE
     Indication: Metastases to meninges
     Dosage: 100 MG/M2, CYCLIC (ON DAY 8)
  9. ETOPOSIDE [Suspect]
     Active Substance: ETOPOSIDE
     Indication: Metastases to lung
  10. METHOTREXATE SODIUM [Suspect]
     Active Substance: METHOTREXATE SODIUM
     Indication: Gestational trophoblastic tumour
     Dosage: 1000 MG/M2, CYCLIC (HIGHER DOSE) ON DAY 8
     Route: 037
  11. METHOTREXATE SODIUM [Suspect]
     Active Substance: METHOTREXATE SODIUM
     Indication: Metastases to meninges
  12. METHOTREXATE SODIUM [Suspect]
     Active Substance: METHOTREXATE SODIUM
     Indication: Metastases to lung
  13. DACTINOMYCIN [Suspect]
     Active Substance: DACTINOMYCIN
     Indication: Gestational trophoblastic tumour
     Dosage: 0.5 MG, CYCLIC (ON DAY 8)
  14. DACTINOMYCIN [Suspect]
     Active Substance: DACTINOMYCIN
     Indication: Metastases to lung
  15. DACTINOMYCIN [Suspect]
     Active Substance: DACTINOMYCIN
     Indication: Metastases to meninges

REACTIONS (4)
  - Toxicity to various agents [Unknown]
  - Neutropenia [Unknown]
  - Mucosal inflammation [Unknown]
  - Infection [Unknown]
